FAERS Safety Report 10504475 (Version 2)
Quarter: 2014Q4

REPORT INFORMATION
  Report Type: Report from Study
  Country: CA (occurrence: CA)
  Receive Date: 20141008
  Receipt Date: 20141008
  Transmission Date: 20150528
  Serious: Yes (Hospitalization, Other)
  Sender: FDA-Public Use
  Company Number: PHHY2014CA093070

PATIENT
  Age: 34 Year
  Sex: Female

DRUGS (2)
  1. ALERTEC [Suspect]
     Active Substance: MODAFINIL
  2. GILENYA [Suspect]
     Active Substance: FINGOLIMOD HYDROCHLORIDE
     Indication: RELAPSING-REMITTING MULTIPLE SCLEROSIS
     Dosage: 0.5 MG, QD
     Route: 048
     Dates: start: 20140728

REACTIONS (7)
  - Dizziness [Recovered/Resolved]
  - Feeling hot [Unknown]
  - Flushing [Recovered/Resolved]
  - Malaise [Recovered/Resolved]
  - Heart rate decreased [Unknown]
  - Renal pain [Recovered/Resolved]
  - Fungal infection [Unknown]

NARRATIVE: CASE EVENT DATE: 20140728
